FAERS Safety Report 11192165 (Version 1)
Quarter: 2015Q2

REPORT INFORMATION
  Report Type: Spontaneous
  Country: MY (occurrence: MY)
  Receive Date: 20150616
  Receipt Date: 20150616
  Transmission Date: 20150821
  Serious: Yes (Other)
  Sender: FDA-Public Use
  Company Number: MY-SA-2015SA081785

PATIENT
  Age: 36 Month
  Sex: Male

DRUGS (1)
  1. CLAFORAN [Suspect]
     Active Substance: CEFOTAXIME SODIUM
     Indication: BRONCHITIS
     Dosage: STRENGHT:1.0G
     Route: 042
     Dates: start: 20140314

REACTIONS (1)
  - Orbital oedema [Recovered/Resolved]

NARRATIVE: CASE EVENT DATE: 20140314
